FAERS Safety Report 8774728 (Version 1)
Quarter: 2012Q4

REPORT INFORMATION
  Report Type: 
  Country: US (occurrence: US)
  Receive Date: 20120913
  Receipt Date: 20120913
  Transmission Date: 20130627
  Serious: No
  Sender: FDA-Public Use
  Company Number: US-PFIZER INC-2012218756

PATIENT
  Age: 87 Year
  Sex: Male
  Weight: 79.37 kg

DRUGS (7)
  1. NEURONTIN [Suspect]
     Indication: NEUROPATHY PERIPHERAL
     Dosage: 300 mg, 1x/day
     Route: 048
     Dates: start: 201207, end: 201207
  2. NEURONTIN [Suspect]
     Dosage: 300 mg, 2x/day
     Dates: start: 201207
  3. NEURONTIN [Suspect]
     Dosage: 300 mg, 3x/day
     Dates: start: 2012, end: 20120905
  4. LEVOTHYROXINE [Concomitant]
     Indication: THYROID DISORDER
     Dosage: 50 ug, UNK
  5. ZOCOR [Concomitant]
     Indication: BLOOD CHOLESTEROL INCREASED
     Dosage: UNK
  6. GALANTAMINE [Concomitant]
     Dosage: UNK
  7. PROSCAR [Concomitant]
     Indication: PROSTATOMEGALY
     Dosage: UNK

REACTIONS (2)
  - Oedema peripheral [Not Recovered/Not Resolved]
  - Drug ineffective [Unknown]
